FAERS Safety Report 8877995 (Version 1)
Quarter: 2012Q4

REPORT INFORMATION
  Report Type: Spontaneous
  Country: US (occurrence: None)
  Receive Date: 20121026
  Receipt Date: 20121026
  Transmission Date: 20130627
  Serious: Yes (Other)
  Sender: FDA-Public Use
  Company Number: AUR-APL-2012-04514

PATIENT
  Age: 63 Year
  Sex: Male
  Weight: 82 kg

DRUGS (3)
  1. PERINDOPRIL [Suspect]
     Route: 048
     Dates: end: 1992
  2. OMEPRAZOLE (OMEPRAZOLE) [Suspect]
  3. LOSEC [Suspect]
     Route: 048
     Dates: end: 1997

REACTIONS (3)
  - Hypocalcaemia [None]
  - Hypovitaminosis [None]
  - Drug ineffective [None]
